FAERS Safety Report 8306880-1 (Version None)
Quarter: 2012Q2

REPORT INFORMATION
  Report Type: 
  Country: None (occurrence: None)
  Receive Date: 20120424
  Receipt Date: 20120414
  Transmission Date: 20120825
  Serious: Yes (Hospitalization)
  Sender: FDA-Public Use
  Company Number: IT-EISAI INC-E7389-02319-SPO-IT

PATIENT
  Sex: Female

DRUGS (2)
  1. HALAVEN [Suspect]
     Dosage: UNKNOWN
     Route: 041
     Dates: start: 20120101
  2. HALAVEN [Suspect]
     Indication: BREAST CANCER
     Dosage: UNKNOWN
     Route: 041
     Dates: start: 20120308, end: 20120308

REACTIONS (5)
  - DYSPHONIA [None]
  - WEIGHT DECREASED [None]
  - ASTHENIA [None]
  - VOMITING [None]
  - LEUKOPENIA [None]
